FAERS Safety Report 6405092-6 (Version None)
Quarter: 2009Q4

REPORT INFORMATION
  Report Type: 
  Country: None (occurrence: None)
  Receive Date: 20091019
  Receipt Date: 20091008
  Transmission Date: 20100525
  Serious: Yes (Life-Threatening)
  Sender: FDA-Public Use
  Company Number: US-JNJFOC-20070206161

PATIENT
  Sex: Female
  Weight: 97.98 kg

DRUGS (36)
  1. INFLIXIMAB [Suspect]
     Route: 042
  2. INFLIXIMAB [Suspect]
     Route: 042
  3. INFLIXIMAB [Suspect]
     Route: 042
  4. INFLIXIMAB [Suspect]
     Route: 042
  5. INFLIXIMAB [Suspect]
     Route: 042
  6. INFLIXIMAB [Suspect]
     Route: 042
  7. INFLIXIMAB [Suspect]
     Route: 042
  8. INFLIXIMAB [Suspect]
     Route: 042
  9. INFLIXIMAB [Suspect]
     Route: 042
  10. INFLIXIMAB [Suspect]
     Route: 042
  11. INFLIXIMAB [Suspect]
     Route: 042
  12. INFLIXIMAB [Suspect]
     Route: 042
  13. INFLIXIMAB [Suspect]
     Route: 042
  14. INFLIXIMAB [Suspect]
     Route: 042
  15. INFLIXIMAB [Suspect]
     Route: 042
  16. INFLIXIMAB [Suspect]
     Route: 042
  17. INFLIXIMAB [Suspect]
     Route: 042
  18. INFLIXIMAB [Suspect]
     Route: 042
  19. INFLIXIMAB [Suspect]
     Route: 042
  20. INFLIXIMAB [Suspect]
     Route: 042
  21. INFLIXIMAB [Suspect]
     Route: 042
  22. INFLIXIMAB [Suspect]
     Route: 042
  23. INFLIXIMAB [Suspect]
     Route: 042
  24. INFLIXIMAB [Suspect]
     Route: 042
  25. INFLIXIMAB [Suspect]
     Route: 042
  26. INFLIXIMAB [Suspect]
     Route: 042
  27. INFLIXIMAB [Suspect]
     Route: 042
  28. INFLIXIMAB [Suspect]
     Route: 042
  29. INFLIXIMAB [Suspect]
     Route: 042
  30. INFLIXIMAB [Suspect]
     Route: 042
  31. INFLIXIMAB [Suspect]
     Route: 042
  32. INFLIXIMAB [Suspect]
     Indication: CROHN'S DISEASE
     Dosage: 2 INFUSION PRIOR TO BASELINE
     Route: 042
  33. AZATHIOPRINE [Concomitant]
     Indication: CROHN'S DISEASE
  34. MESALAMINE [Concomitant]
     Indication: CROHN'S DISEASE
  35. FOLIC ACID [Concomitant]
     Indication: CROHN'S DISEASE
  36. SYNTHROID [Concomitant]
     Indication: CROHN'S DISEASE

REACTIONS (1)
  - BLADDER TRANSITIONAL CELL CARCINOMA [None]
